FAERS Safety Report 7331098-9 (Version None)
Quarter: 2011Q1

REPORT INFORMATION
  Report Type: 
  Country: None (occurrence: None)
  Receive Date: 20110304
  Receipt Date: 20110222
  Transmission Date: 20110831
  Serious: Yes (Hospitalization)
  Sender: FDA-Public Use
  Company Number: US-JNJFOC-20110207937

PATIENT
  Sex: Male
  Weight: 118.39 kg

DRUGS (6)
  1. REMICADE [Suspect]
     Route: 042
  2. ACETAMINOPHEN [Concomitant]
     Indication: PREMEDICATION
  3. REMICADE [Suspect]
     Indication: CROHN'S DISEASE
     Dosage: 3 DOSES PRIOR TO REGISTRATION
     Route: 042
  4. REMICADE [Suspect]
     Dosage: TOTAL OF 48 DOSES
     Route: 042
  5. METHOTREXATE [Concomitant]
     Indication: CROHN'S DISEASE
  6. ANTIHISTAMINE [Concomitant]
     Indication: PREMEDICATION

REACTIONS (2)
  - CEREBRAL INFARCTION [None]
  - BRADYCARDIA [None]
